FAERS Safety Report 9670084 (Version 2)
Quarter: 2013Q4

REPORT INFORMATION
  Report Type: Spontaneous
  Country: US (occurrence: US)
  Receive Date: 20131105
  Receipt Date: 20131202
  Transmission Date: 20140711
  Serious: Yes (Hospitalization)
  Sender: FDA-Public Use
  Company Number: US-B.I. PHARMACEUTICALS,INC./RIDGEFIELD-2013-BI-35012BP

PATIENT
  Age: 58 Year
  Sex: Male
  Weight: 122.47 kg

DRUGS (8)
  1. PRADAXA [Suspect]
     Indication: ATRIAL FIBRILLATION
     Dosage: 300 MG
     Route: 048
     Dates: start: 20111130, end: 20120419
  2. PRADAXA [Suspect]
     Dosage: 300 MG
     Route: 048
     Dates: start: 20121130, end: 20130204
  3. PRADAXA [Suspect]
     Dosage: 300 MG
     Route: 048
     Dates: start: 20131026, end: 20131029
  4. CARDIZEM [Concomitant]
     Dosage: 180 MG
  5. LISINOPRIL [Concomitant]
     Dosage: 20 MG
  6. COREG [Concomitant]
     Dosage: 25 MG
  7. TIKOSYN [Concomitant]
  8. FLECAINIDE [Concomitant]

REACTIONS (1)
  - Atrial fibrillation [Recovered/Resolved]
